FAERS Safety Report 21064020 (Version 1)
Quarter: 2022Q3

REPORT INFORMATION
  Report Type: Spontaneous
  Country: CA (occurrence: CA)
  Receive Date: 20220711
  Receipt Date: 20220711
  Transmission Date: 20221026
  Serious: Yes (Other)
  Sender: FDA-Public Use
  Company Number: None

PATIENT
  Age: 71 Year
  Sex: Female
  Weight: 70 kg

DRUGS (7)
  1. METHOTREXATE [Suspect]
     Active Substance: METHOTREXATE
     Indication: Product used for unknown indication
     Route: 042
  2. ENBREL [Concomitant]
     Active Substance: ETANERCEPT
  3. RITUXIMAB [Concomitant]
     Active Substance: RITUXIMAB
     Dosage: 1 EVERY 1 WEEKS
  4. FUROSEMIDE [Concomitant]
     Active Substance: FUROSEMIDE
  5. LAMOTRIGINE [Concomitant]
     Active Substance: LAMOTRIGINE
  6. LEFLUNOMIDE [Concomitant]
     Active Substance: LEFLUNOMIDE
     Dosage: EVERY 1 DAYS
  7. PREDNISONE [Concomitant]
     Active Substance: PREDNISONE

REACTIONS (6)
  - C-reactive protein increased [Not Recovered/Not Resolved]
  - Drug ineffective [Unknown]
  - Inflammation [Not Recovered/Not Resolved]
  - Musculoskeletal stiffness [Not Recovered/Not Resolved]
  - Renal impairment [Not Recovered/Not Resolved]
  - Synovial cyst [Not Recovered/Not Resolved]
